FAERS Safety Report 5167498-5 (Version None)
Quarter: 2006Q4

REPORT INFORMATION
  Report Type: 
  Country: None (occurrence: None)
  Receive Date: 20061130
  Receipt Date: 20061121
  Transmission Date: 20070319
  Serious: Yes (Hospitalization)
  Sender: FDA-Public Use
  Company Number: 2006-05912

PATIENT
  Sex: Female
  Weight: 3.1 kg

DRUGS (1)
  1. ATRACURIUM BESYLATE [Suspect]
     Indication: WRONG DRUG ADMINISTERED
     Dosage: 10 MG, SINGLE,  INTRAMUSCULAR
     Route: 030
     Dates: start: 20021129

REACTIONS (7)
  - BRADYCARDIA [None]
  - HYPERGLYCAEMIA [None]
  - OVERDOSE [None]
  - PARALYSIS FLACCID [None]
  - RESPIRATORY ALKALOSIS [None]
  - RESPIRATORY FAILURE [None]
  - WRONG DRUG ADMINISTERED [None]
